FAERS Safety Report 20691942 (Version 1)
Quarter: 2022Q2

REPORT INFORMATION
  Report Type: Spontaneous
  Country: DE (occurrence: DE)
  Receive Date: 20220408
  Receipt Date: 20220408
  Transmission Date: 20220721
  Serious: Yes (Other)
  Sender: FDA-Public Use
  Company Number: DE-PFIZER INC-202101696712

PATIENT
  Age: 48 Year
  Sex: Female

DRUGS (4)
  1. OCREVUS [Suspect]
     Active Substance: OCRELIZUMAB
     Indication: Primary progressive multiple sclerosis
     Dosage: 600 MG, CYCLIC 177DAYS
     Route: 042
     Dates: start: 20201006
  2. COMIRNATY [Suspect]
     Active Substance: TOZINAMERAN
     Indication: COVID-19 immunisation
     Dosage: DOSE 2, SINGLE
     Route: 065
     Dates: start: 20210907, end: 20210907
  3. IBUPROFEN [Concomitant]
     Active Substance: IBUPROFEN
     Dosage: AS NEEDED
  4. NOVALGIN (METAMIZOLE SODIUM) [Concomitant]
     Active Substance: METAMIZOLE SODIUM
     Dosage: AS NEEDED

REACTIONS (8)
  - Hemiparesis [Unknown]
  - Neuralgia [Recovered/Resolved]
  - Headache [Recovered/Resolved]
  - Feeling hot [Recovered/Resolved]
  - Myalgia [Recovered/Resolved]
  - Dizziness [Recovered/Resolved]
  - Disease recurrence [Recovered/Resolved]
  - Pain in extremity [Recovered/Resolved]

NARRATIVE: CASE EVENT DATE: 20210907
